FAERS Safety Report 4717813-9 (Version None)
Quarter: 2005Q3

REPORT INFORMATION
  Report Type: 
  Country: None (occurrence: None)
  Receive Date: 20050715
  Receipt Date: 20040719
  Transmission Date: 20060218
  Serious: Yes (Hospitalization)
  Sender: FDA-Public Use
  Company Number: 2004-00229

PATIENT
  Sex: 0

DRUGS (1)
  1. INTEGRILIN [Suspect]
     Indication: CORONARY ANGIOPLASTY

REACTIONS (1)
  - THROMBOCYTOPENIA [None]
